FAERS Safety Report 24269641 (Version 3)
Quarter: 2024Q3

REPORT INFORMATION
  Report Type: Spontaneous
  Country: US (occurrence: US)
  Receive Date: 20240830
  Receipt Date: 20240930
  Transmission Date: 20241017
  Serious: Yes (Death, Other)
  Sender: BIOVITRUM
  Company Number: US-BIOVITRUM-2024-US-011439

PATIENT
  Age: 87 Year
  Sex: Male

DRUGS (3)
  1. VONJO [Suspect]
     Active Substance: PACRITINIB
     Indication: Myelofibrosis
     Dosage: TWICE DAILY
     Route: 048
     Dates: start: 20240814
  2. VONJO [Suspect]
     Active Substance: PACRITINIB
     Dosage: TAKE 2 CAPSULE TWICE DAILY
     Route: 048
     Dates: start: 20240814
  3. JAKAFI [Suspect]
     Active Substance: RUXOLITINIB
     Indication: Product used for unknown indication

REACTIONS (7)
  - Colitis [Recovering/Resolving]
  - Pneumonia [Unknown]
  - Off label use [Recovered/Resolved]
  - Gastrointestinal disorder [Unknown]
  - Lethargy [Unknown]
  - Peripheral swelling [Unknown]
  - Death [Fatal]

NARRATIVE: CASE EVENT DATE: 20240814
